FAERS Safety Report 4510449-4 (Version None)
Quarter: 2004Q4

REPORT INFORMATION
  Report Type: 
  Country: None (occurrence: None)
  Receive Date: 20041124
  Receipt Date: 20030718
  Transmission Date: 20050328
  Serious: Yes (Other)
  Sender: FDA-Public Use
  Company Number: GB-GLAXOSMITHKLINE-B0304961A

PATIENT
  Age: 50 Year
  Sex: Male
  Weight: 95 kg

DRUGS (5)
  1. LAMICTAL [Suspect]
     Indication: EPILEPSY
     Dosage: 150MG TWICE PER DAY
     Dates: start: 20030408
  2. FLUCONAZOLE [Suspect]
     Dosage: 50MG PER DAY
     Route: 065
     Dates: start: 20040714
  3. LOSEC [Concomitant]
     Dosage: 20MG PER DAY
  4. SALBUTAMOL [Concomitant]
     Route: 055
  5. SERETIDE [Concomitant]
     Route: 055

REACTIONS (2)
  - CONVULSION [None]
  - DRUG INTERACTION [None]
